FAERS Safety Report 24569167 (Version 1)
Quarter: 2024Q4

REPORT INFORMATION
  Report Type: Spontaneous
  Country: GB (occurrence: GB)
  Receive Date: 20241031
  Receipt Date: 20241031
  Transmission Date: 20250115
  Serious: Yes (Other)
  Sender: PFIZER
  Company Number: None

PATIENT
  Age: 71 Year
  Sex: Female

DRUGS (1)
  1. PACLITAXEL [Suspect]
     Active Substance: PACLITAXEL
     Indication: Ovarian cancer
     Dosage: 120MG - IV INFUSION
     Route: 042

REACTIONS (6)
  - Musculoskeletal chest pain [Unknown]
  - Middle insomnia [Unknown]
  - Nausea [Unknown]
  - Fatigue [Unknown]
  - Epistaxis [Unknown]
  - Taste disorder [Unknown]

NARRATIVE: CASE EVENT DATE: 20241023
